FAERS Safety Report 6148656-X (Version None)
Quarter: 2009Q2

REPORT INFORMATION
  Report Type: 
  Country: None (occurrence: None)
  Receive Date: 20090408
  Receipt Date: 20090408
  Transmission Date: 20091009
  Serious: Yes (Other)
  Sender: FDA-Public Use
  Company Number: US-PFIZER INC-2007099205

PATIENT
  Sex: Female
  Weight: 63.181 kg

DRUGS (6)
  1. CHANTIX [Suspect]
     Indication: SMOKING CESSATION THERAPY
     Dates: start: 20071120, end: 20071123
  2. LIPITOR [Concomitant]
  3. TRIAMTERENE [Concomitant]
  4. FLUOXETINE [Concomitant]
  5. LISINOPRIL [Concomitant]
  6. GEMFIBROZIL [Concomitant]

REACTIONS (2)
  - GLOSSODYNIA [None]
  - TONGUE OEDEMA [None]
